FAERS Safety Report 6701724-3 (Version None)
Quarter: 2010Q2

REPORT INFORMATION
  Report Type: 
  Country: None (occurrence: None)
  Receive Date: 20100429
  Receipt Date: 20100329
  Transmission Date: 20101027
  Serious: No
  Sender: FDA-Public Use
  Company Number: US-BAYER-201013734BCC

PATIENT
  Age: 82 Year
  Sex: Female
  Weight: 61 kg

DRUGS (3)
  1. ALEVE (CAPLET) [Suspect]
     Indication: ARTHRALGIA
     Dosage: TOTAL DAILY DOSE: 440 MG  UNIT DOSE: 220 MG
     Route: 048
     Dates: start: 20100323
  2. VYTORIN [Concomitant]
     Route: 065
  3. UNKNOWN VITAMIN SUPPLEMENT [Concomitant]
     Route: 065

REACTIONS (1)
  - ARTHRALGIA [None]
